FAERS Safety Report 12659480 (Version 1)
Quarter: 2016Q3

REPORT INFORMATION
  Report Type: Spontaneous
  Country: US (occurrence: None)
  Receive Date: 20160816
  Receipt Date: 20160816
  Transmission Date: 20161109
  Serious: Yes (Hospitalization)
  Sender: FDA-Public Use
  Company Number: None

PATIENT
  Age: 66 Year
  Sex: Female
  Weight: 99.8 kg

DRUGS (1)
  1. XELODA [Suspect]
     Active Substance: CAPECITABINE
     Dosage: CAPECITABINE (XELODA)?TOTAL DOSE ADMINISTERED 100800 MG?COMPLETE PRE-OPERATIVE TX WITH RT
     Dates: end: 20160504

REACTIONS (4)
  - Pelvic pain [None]
  - Abscess [None]
  - Culture positive [None]
  - Streptococcus test positive [None]

NARRATIVE: CASE EVENT DATE: 20160805
